FAERS Safety Report 13017808 (Version 1)
Quarter: 2016Q4

REPORT INFORMATION
  Report Type: Spontaneous
  Country: US (occurrence: US)
  Receive Date: 20161212
  Receipt Date: 20161212
  Transmission Date: 20170207
  Serious: No
  Sender: FDA-Public Use
  Company Number: US-LPDUSPRD-20151071

PATIENT
  Age: 47 Year
  Sex: Female
  Weight: 87 kg

DRUGS (1)
  1. VENOFER [Suspect]
     Active Substance: IRON SUCROSE
     Dosage: 200 MG N(10 ML)
     Route: 030

REACTIONS (2)
  - Incorrect route of drug administration [Unknown]
  - Drug administered at inappropriate site [None]
